FAERS Safety Report 23506587 (Version 2)
Quarter: 2024Q1

REPORT INFORMATION
  Report Type: Spontaneous
  Country: US (occurrence: US)
  Receive Date: 20240209
  Receipt Date: 20240216
  Transmission Date: 20240410
  Serious: Yes (Hospitalization, Other)
  Sender: FDA-Public Use
  Company Number: US-009507513-2402USA002466

PATIENT
  Age: 80 Year
  Sex: Male
  Weight: 97.052 kg

DRUGS (1)
  1. VERQUVO [Suspect]
     Active Substance: VERICIGUAT
     Dosage: 5 MG TABLET ONCE A DAY
     Route: 048
     Dates: start: 202304

REACTIONS (5)
  - Pneumothorax [Unknown]
  - Cardiomyopathy [Unknown]
  - Diabetes mellitus [Unknown]
  - Hypertension [Unknown]
  - Secondary hypertension [Unknown]

NARRATIVE: CASE EVENT DATE: 20240116
